FAERS Safety Report 5620588-2 (Version None)
Quarter: 2008Q1

REPORT INFORMATION
  Report Type: 
  Country: None (occurrence: None)
  Receive Date: 20080208
  Receipt Date: 20080128
  Transmission Date: 20080703
  Serious: Yes (Hospitalization)
  Sender: FDA-Public Use
  Company Number: US-BAYER-200810057BCC

PATIENT
  Age: 19 Year
  Sex: Male
  Weight: 113 kg

DRUGS (2)
  1. ALEVE [Suspect]
     Indication: FOOT OPERATION
     Dosage: UNIT DOSE: 220 MG
     Route: 048
     Dates: start: 20070824, end: 20070826
  2. PRILOSEC [Concomitant]

REACTIONS (9)
  - ABDOMINAL PAIN UPPER [None]
  - DEHYDRATION [None]
  - DYSPNOEA [None]
  - GASTRIC ULCER [None]
  - GASTRIC ULCER PERFORATION [None]
  - MUSCLE SPASMS [None]
  - MUSCULOSKELETAL PAIN [None]
  - OEDEMA PERIPHERAL [None]
  - WEIGHT DECREASED [None]
